FAERS Safety Report 5574560-1 (Version None)
Quarter: 2007Q4

REPORT INFORMATION
  Report Type: 
  Country: None (occurrence: None)
  Receive Date: 20071227
  Receipt Date: 20071220
  Transmission Date: 20080405
  Serious: Yes (Life-Threatening)
  Sender: FDA-Public Use
  Company Number: JP-SANOFI-SYNTHELABO-A01200712477

PATIENT
  Sex: Male

DRUGS (11)
  1. CALCIUM GLUCONATE [Concomitant]
     Indication: PREMEDICATION
     Route: 042
     Dates: start: 20060821, end: 20071010
  2. AZASETRON HYDRCHLORIDE [Concomitant]
     Indication: PREMEDICATION
     Route: 042
     Dates: start: 20060821, end: 20071010
  3. DEXAMETHASONE SODIUM PHOSPHATE [Concomitant]
     Indication: PREMEDICATION
     Route: 042
     Dates: start: 20060821, end: 20071010
  4. RADIOTHERAPY [Concomitant]
     Dosage: TOTAL 50-60 GY
     Dates: start: 20061023, end: 20061206
  5. FRESH-FROZEN HUMAN PLASMA [Concomitant]
     Indication: HAEMOSTASIS
     Route: 042
     Dates: start: 20071011, end: 20071011
  6. FRESH-FROZEN HUMAN PLASMA [Concomitant]
     Route: 042
     Dates: start: 20071012, end: 20071012
  7. NIFEDIPINE [Concomitant]
     Indication: BLOOD PRESSURE INCREASED
     Route: 048
     Dates: start: 20071010, end: 20071016
  8. AMLODIPINE BESYLATE [Concomitant]
     Indication: BLOOD PRESSURE INCREASED
     Route: 048
     Dates: start: 20071010, end: 20071016
  9. LEUCOVORIN CALCIUM [Concomitant]
     Dosage: 175 MG/BODY=99.4 MG/M2 D1-2
     Route: 042
     Dates: start: 20071010, end: 20071010
  10. ELPLAT [Suspect]
     Indication: RECTAL CANCER
     Dosage: 140 MG/BODY=79.5 MG/M2 D1
     Route: 041
     Dates: start: 20071010, end: 20071010
  11. FLUOROURACIL [Concomitant]
     Indication: RECTAL CANCER
     Dosage: 750 MG/BODY=426.1 MG/M2 BOLUS ONLY
     Route: 040
     Dates: start: 20071010, end: 20071010

REACTIONS (4)
  - DISSEMINATED INTRAVASCULAR COAGULATION [None]
  - LEUKOPENIA [None]
  - NEUTROPENIA [None]
  - THROMBOCYTOPENIA [None]
